FAERS Safety Report 25462147 (Version 1)
Quarter: 2025Q2

REPORT INFORMATION
  Report Type: Spontaneous
  Country: CH (occurrence: CH)
  Receive Date: 20250620
  Receipt Date: 20250620
  Transmission Date: 20250717
  Serious: Yes (Hospitalization)
  Sender: PFIZER
  Company Number: None

PATIENT
  Sex: Male
  Weight: 1.065 kg

DRUGS (11)
  1. DILTIAZEM HYDROCHLORIDE [Suspect]
     Active Substance: DILTIAZEM HYDROCHLORIDE
     Indication: Hypertension
     Dosage: 180 MG, 2X/DAY
     Route: 064
     Dates: end: 2024
  2. ALDOMET [Suspect]
     Active Substance: METHYLDOPA
     Indication: Hypertension
     Dosage: 250 MG, 2X/DAY
     Route: 064
     Dates: end: 20241202
  3. ALDOMET [Suspect]
     Active Substance: METHYLDOPA
     Dosage: 500 MG
     Route: 064
     Dates: start: 20241202
  4. ENALAPRIL [Suspect]
     Active Substance: ENALAPRIL
     Indication: Hypertension
     Dosage: 20 MG, 2X/DAY
     Route: 064
     Dates: end: 20240731
  5. ISOPTIN [Suspect]
     Active Substance: VERAPAMIL HYDROCHLORIDE
     Indication: Hypertension
     Dosage: 80 MG, 2X/DAY
     Route: 064
     Dates: start: 20241202
  6. TRANDATE [Suspect]
     Active Substance: LABETALOL HYDROCHLORIDE
     Indication: Hypertension
     Dosage: 200 MG, 2X/DAY
     Route: 064
     Dates: start: 202407, end: 20241202
  7. TRANDATE [Suspect]
     Active Substance: LABETALOL HYDROCHLORIDE
     Dosage: 300 MG, 1X/DAY
     Route: 064
     Dates: start: 20241202
  8. ASPIRIN [Suspect]
     Active Substance: ASPIRIN
     Route: 064
     Dates: start: 2024
  9. NIFEDIPINE [Suspect]
     Active Substance: NIFEDIPINE
     Indication: Hypertension
     Dosage: 20 MG, 3X/DAY
     Route: 064
     Dates: start: 20241202
  10. MINERALS\VITAMINS [Concomitant]
     Active Substance: MINERALS\VITAMINS
     Route: 064
     Dates: start: 20240925
  11. ANTI-D GLOBULIN [Concomitant]
     Route: 064
     Dates: start: 20241203, end: 20241203

REACTIONS (15)
  - Neonatal respiratory distress syndrome [Recovered/Resolved]
  - Bradycardia neonatal [Recovered/Resolved]
  - Infantile apnoea [Recovered/Resolved]
  - Neonatal hypoxia [Recovered/Resolved]
  - Anaemia neonatal [Unknown]
  - Rhinovirus infection [Unknown]
  - Hypoglycaemia neonatal [Recovered/Resolved]
  - Ophthalmia neonatorum [Recovered/Resolved]
  - Hypokalaemia [Recovered/Resolved]
  - Hyperbilirubinaemia neonatal [Recovered/Resolved]
  - Neutropenia neonatal [Not Recovered/Not Resolved]
  - Placental disorder [Unknown]
  - Foetal vascular malperfusion [Unknown]
  - Maternal exposure during pregnancy [Unknown]
  - Premature baby [Recovered/Resolved]

NARRATIVE: CASE EVENT DATE: 20241216
